FAERS Safety Report 5471007-0 (Version None)
Quarter: 2007Q3

REPORT INFORMATION
  Report Type: 
  Country: None (occurrence: None)
  Receive Date: 20070928
  Receipt Date: 20070920
  Transmission Date: 20080115
  Serious: Yes (Life-Threatening, Hospitalization, Other)
  Sender: FDA-Public Use
  Company Number: B0466760A

PATIENT
  Age: 74 Year
  Sex: Female
  Weight: 67.6 kg

DRUGS (10)
  1. ARIXTRA [Suspect]
     Dosage: 2.5MG PER DAY
     Route: 058
     Dates: start: 20070312, end: 20070315
  2. LEVOTHYROX [Concomitant]
     Indication: THYROIDECTOMY
     Dosage: 125MCG PER DAY
     Route: 048
  3. EFFEXOR [Concomitant]
     Indication: DEPRESSION
     Dosage: 37.5MG TWICE PER DAY
     Route: 048
     Dates: end: 20070316
  4. FLECAINIDE ACETATE [Concomitant]
     Indication: ARRHYTHMIA
     Dosage: 1TAB IN THE MORNING
     Route: 048
  5. ZOLPIDEM TARTRATE [Concomitant]
     Dosage: 50MG AT NIGHT
     Route: 048
  6. BROMAZEPAM [Concomitant]
     Dosage: .5MG AT NIGHT
     Route: 048
  7. LOVENOX [Concomitant]
     Route: 058
     Dates: start: 20070301, end: 20070312
  8. DAFALGAN [Concomitant]
     Indication: PAIN
     Dosage: 6UNIT PER DAY
     Route: 048
     Dates: end: 20070316
  9. SKENAN [Concomitant]
     Dosage: 40MG PER DAY
  10. MOVICOL [Concomitant]
     Dosage: 2UNIT PER DAY

REACTIONS (12)
  - ABDOMINAL PAIN [None]
  - ASTHENIA [None]
  - DYSPHAGIA [None]
  - GASTRIC ULCER [None]
  - HYPOVOLAEMIC SHOCK [None]
  - MELAENA [None]
  - MUSCLE HAEMORRHAGE [None]
  - PNEUMONIA ASPIRATION [None]
  - RENAL TUBULAR NECROSIS [None]
  - SHOCK HAEMORRHAGIC [None]
  - THROMBOCYTOPENIA [None]
  - VOCAL CORD PARALYSIS [None]
